FAERS Safety Report 21984393 (Version 1)
Quarter: 2023Q1

REPORT INFORMATION
  Report Type: Report from Study
  Country: US (occurrence: US)
  Receive Date: 20230213
  Receipt Date: 20230213
  Transmission Date: 20230418
  Serious: No
  Sender: FDA-Public Use
  Company Number: US-ORG100014127-2022000889

PATIENT
  Age: 72 Year
  Sex: Female

DRUGS (14)
  1. LYSODREN [Suspect]
     Active Substance: MITOTANE
     Indication: Adrenal gland cancer
     Dosage: TAKES 6 TABLETS BY MOUTH TWICE DAILY
     Route: 048
  2. HYDROCORT TAB 20 MG [Concomitant]
     Indication: Product used for unknown indication
  3. ASPIRIN LOW TAB 81MG EC [Concomitant]
     Indication: Product used for unknown indication
  4. ALLOPURINOL  TAB 300MG [Concomitant]
     Indication: Product used for unknown indication
  5. CLARITIN TAB 10MG [Concomitant]
     Indication: Product used for unknown indication
  6. CLONAZEPAM TAB 0.5MG [Concomitant]
     Indication: Product used for unknown indication
  7. LOSARTAN POT TAB 100MG [Concomitant]
     Indication: Product used for unknown indication
  8. MELOXICAM [Concomitant]
     Active Substance: MELOXICAM
     Indication: Product used for unknown indication
  9. METOPROL SUC TAB 50MG ER [Concomitant]
     Indication: Product used for unknown indication
  10. MONTELUKAST [Concomitant]
     Active Substance: MONTELUKAST SODIUM
     Indication: Product used for unknown indication
  11. OMEPRAZOLE [Concomitant]
     Active Substance: OMEPRAZOLE
     Indication: Product used for unknown indication
  12. PRAVACHOL TAB 20MG [Concomitant]
     Indication: Product used for unknown indication
  13. PREDNISONE [Concomitant]
     Active Substance: PREDNISONE
     Indication: Product used for unknown indication
  14. TRIAMT/HCTZ TAB 75-50MG [Concomitant]
     Indication: Product used for unknown indication

REACTIONS (2)
  - Diarrhoea [Not Recovered/Not Resolved]
  - Product use complaint [Not Recovered/Not Resolved]
